FAERS Safety Report 4507669-1 (Version None)
Quarter: 2004Q4

REPORT INFORMATION
  Report Type: 
  Country: None (occurrence: None)
  Receive Date: 20041118
  Receipt Date: 20041028
  Transmission Date: 20050328
  Serious: Yes (Death, Hospitalization)
  Sender: FDA-Public Use
  Company Number: B0349612A

PATIENT
  Age: 2 Month
  Sex: Female

DRUGS (3)
  1. LANOXIN [Suspect]
  2. PANCREATIC ENZYME [Concomitant]
  3. ANTIBIOTICS [Concomitant]

REACTIONS (27)
  - ANURIA [None]
  - ARRHYTHMIA [None]
  - AV DISSOCIATION [None]
  - BRADYCARDIA [None]
  - CARDIAC MURMUR [None]
  - DEHYDRATION [None]
  - FLATULENCE [None]
  - GASTROINTESTINAL HAEMORRHAGE [None]
  - INTERCOSTAL RETRACTION [None]
  - INTESTINAL PERFORATION [None]
  - LETHARGY [None]
  - LIVEDO RETICULARIS [None]
  - LIVER DISORDER [None]
  - MEDICATION ERROR [None]
  - MULTI-ORGAN FAILURE [None]
  - NECROTISING COLITIS [None]
  - OLIGURIA [None]
  - PALLOR [None]
  - PANCREATIC DISORDER [None]
  - POST PROCEDURAL COMPLICATION [None]
  - RENAL DISORDER [None]
  - RESPIRATORY ACIDOSIS [None]
  - RESPIRATORY DISTRESS [None]
  - SOMNOLENCE [None]
  - TACHYCARDIA [None]
  - TACHYPNOEA [None]
  - THERAPEUTIC AGENT TOXICITY [None]
